FAERS Safety Report 14030682 (Version 3)
Quarter: 2017Q4

REPORT INFORMATION
  Report Type: Report from Study
  Country: None (occurrence: US)
  Receive Date: 20171002
  Receipt Date: 20171017
  Transmission Date: 20180321
  Serious: Yes (Death)
  Sender: FDA-Public Use
  Company Number: US-ABBVIE-17P-163-2116285-00

PATIENT
  Age: 91 Year
  Sex: Male
  Weight: 43.13 kg

DRUGS (1)
  1. CREON [Suspect]
     Active Substance: PANCRELIPASE AMYLASE\PANCRELIPASE LIPASE\PANCRELIPASE PROTEASE
     Indication: PANCREATIC CARCINOMA
     Route: 048

REACTIONS (3)
  - Pancreatic carcinoma [Fatal]
  - Adult failure to thrive [Fatal]
  - Bone cancer [Fatal]

NARRATIVE: CASE EVENT DATE: 20170909
